FAERS Safety Report 24895317 (Version 1)
Quarter: 2025Q1

REPORT INFORMATION
  Report Type: Spontaneous
  Country: US (occurrence: US)
  Receive Date: 20250128
  Receipt Date: 20250128
  Transmission Date: 20250408
  Serious: No
  Sender: ROCHE
  Company Number: US-ROCHE-10000190478

PATIENT
  Age: 25 Year
  Sex: Male

DRUGS (2)
  1. HEMLIBRA [Suspect]
     Active Substance: EMICIZUMAB-KXWH
     Indication: Factor VIII deficiency
     Dosage: INJECT 204 MG (1.36 ML) SUBCUTANEOUSLY ONCE EVERY 2 WEEKS AS MAINTENANCE DOSE?150 MG/ML
     Route: 058
     Dates: start: 2022
  2. HEMLIBRA [Suspect]
     Active Substance: EMICIZUMAB-KXWH
     Dosage: INJECT 204 MG (1.36 ML) SUBCUTANEOUSLY ONCE EVERY 2 WEEKS AS MAINTENANCE DOSE?60MG/0.4 ML
     Route: 058
     Dates: start: 2022

REACTIONS (1)
  - Haemorrhage [Unknown]
